FAERS Safety Report 8822441 (Version 1)
Quarter: 2012Q4

REPORT INFORMATION
  Report Type: 
  Country: FR (occurrence: FR)
  Receive Date: 20121003
  Receipt Date: 20121003
  Transmission Date: 20130627
  Serious: Yes (Hospitalization)
  Sender: FDA-Public Use
  Company Number: FR-ELI_LILLY_AND_COMPANY-FR201209007665

PATIENT
  Sex: Male

DRUGS (1)
  1. ALIMTA [Suspect]

REACTIONS (1)
  - Aplasia [Unknown]
